FAERS Safety Report 19278457 (Version 1)
Quarter: 2021Q2

REPORT INFORMATION
  Report Type: Spontaneous
  Country: US (occurrence: US)
  Receive Date: 20210520
  Receipt Date: 20210520
  Transmission Date: 20210717
  Serious: No
  Sender: FDA-Public Use
  Company Number: US-CELLTRION INC.-2021US003253

PATIENT

DRUGS (3)
  1. TRUXIMA [Suspect]
     Active Substance: RITUXIMAB-ABBS
     Indication: SYSTEMIC LUPUS ERYTHEMATOSUS
     Dosage: 750 MG, ON WEEK 0 AND 2, REPEAT CYCLE Q6M
     Dates: start: 20210220
  2. TRUXIMA [Suspect]
     Active Substance: RITUXIMAB-ABBS
     Indication: CONNECTIVE TISSUE DISORDER
  3. TRUXIMA [Suspect]
     Active Substance: RITUXIMAB-ABBS
     Indication: INTERSTITIAL LUNG DISEASE
     Dosage: 750 MG, WEEK 0 AND 2, REPEAT CYCLE Q6M
     Dates: start: 20210303

REACTIONS (1)
  - Off label use [Unknown]

NARRATIVE: CASE EVENT DATE: 20210220
